FAERS Safety Report 18108966 (Version 5)
Quarter: 2023Q1

REPORT INFORMATION
  Report Type: Spontaneous
  Country: US (occurrence: US)
  Receive Date: 20200804
  Receipt Date: 20230306
  Transmission Date: 20230418
  Serious: Yes (Other)
  Sender: FDA-Public Use
  Company Number: US-PFIZER INC-2020291992

PATIENT
  Age: 78 Year
  Sex: Female

DRUGS (3)
  1. INLYTA [Suspect]
     Active Substance: AXITINIB
     Dosage: 5 MG
  2. INLYTA [Suspect]
     Active Substance: AXITINIB
     Dosage: 3 MG
  3. INLYTA [Suspect]
     Active Substance: AXITINIB
     Dosage: 1 MG
     Dates: start: 20221107

REACTIONS (4)
  - Pneumonia [Unknown]
  - COVID-19 [Unknown]
  - Hypoacusis [Unknown]
  - Product dose omission issue [Unknown]
